FAERS Safety Report 9321285 (Version 1)
Quarter: 2013Q2

REPORT INFORMATION
  Report Type: Spontaneous
  Country: DE (occurrence: None)
  Receive Date: 20130528
  Receipt Date: 20130528
  Transmission Date: 20140414
  Serious: Yes (Other)
  Sender: FDA-Public Use
  Company Number: 1305-686

PATIENT
  Age: 76 Year
  Sex: Male

DRUGS (1)
  1. EYLEA (AFLIBERCEPT)(INJECTION)(AFLIBERCEPT) [Suspect]
     Indication: AGE-RELATED MACULAR DEGENERATION
     Dates: start: 2013

REACTIONS (4)
  - Pain [None]
  - Insomnia [None]
  - Intervertebral disc protrusion [None]
  - Abasia [None]
